FAERS Safety Report 14134063 (Version 9)
Quarter: 2018Q4

REPORT INFORMATION
  Report Type: Report from Study
  Country: US (occurrence: US)
  Receive Date: 20171026
  Receipt Date: 20181220
  Transmission Date: 20190204
  Serious: Yes (Hospitalization, Other)
  Sender: FDA-Public Use
  Company Number: US-TESARO, INC.-US-2017TSO01380

PATIENT
  Age: 58 Year
  Sex: Female

DRUGS (24)
  1. ZEJULA [Suspect]
     Active Substance: NIRAPARIB
     Indication: NEOPLASM MALIGNANT
     Dosage: 200 MG, QD
     Route: 048
     Dates: start: 20170802
  2. PERCOCET [Concomitant]
     Active Substance: ACETAMINOPHEN\OXYCODONE HYDROCHLORIDE
     Indication: PRODUCT USED FOR UNKNOWN INDICATION
     Dosage: UNK
  3. OXYCODONE [Concomitant]
     Active Substance: OXYCODONE
     Indication: PRODUCT USED FOR UNKNOWN INDICATION
     Dosage: UNK
  4. GABAPENTIN. [Concomitant]
     Active Substance: GABAPENTIN
     Indication: PRODUCT USED FOR UNKNOWN INDICATION
     Dosage: UNK
  5. ZEJULA [Suspect]
     Active Substance: NIRAPARIB
     Dosage: 100 MG, QOD (ALTERNATING WITH 200MG EVERY OTHER DAY)
     Route: 048
     Dates: start: 20171128
  6. METFORMIN [Concomitant]
     Active Substance: METFORMIN HYDROCHLORIDE
     Indication: PRODUCT USED FOR UNKNOWN INDICATION
     Dosage: UNK
  7. LIPITOR [Concomitant]
     Active Substance: ATORVASTATIN CALCIUM
     Indication: PRODUCT USED FOR UNKNOWN INDICATION
     Dosage: UNK
  8. ROBITUSSIN (GUAIFENESIN) [Concomitant]
     Active Substance: GUAIFENESIN
     Indication: COUGH
     Dosage: UNK, BID
  9. ZEJULA [Suspect]
     Active Substance: NIRAPARIB
     Indication: MALIGNANT PERITONEAL NEOPLASM
     Dosage: 300 MG, QD
     Route: 048
     Dates: start: 20170622, end: 20170731
  10. ZEJULA [Suspect]
     Active Substance: NIRAPARIB
     Dosage: 200 MG, QOD (ALTERNATING WITH 100MG EVERY OTHER DAY)
     Route: 048
  11. ZEJULA [Suspect]
     Active Substance: NIRAPARIB
     Dosage: 100 MG, QOD  (ALTERNATING WITH 200MG EVERY OTHER DAY)
     Route: 048
  12. SERTRALINE [Concomitant]
     Active Substance: SERTRALINE HYDROCHLORIDE
     Indication: PRODUCT USED FOR UNKNOWN INDICATION
     Dosage: UNK
  13. VITAMIN B12 [Concomitant]
     Active Substance: CYANOCOBALAMIN
     Indication: PRODUCT USED FOR UNKNOWN INDICATION
     Dosage: UNK
  14. RELISTOR [Concomitant]
     Active Substance: METHYLNALTREXONE BROMIDE
     Indication: PRODUCT USED FOR UNKNOWN INDICATION
     Dosage: UNK
  15. ZEJULA [Suspect]
     Active Substance: NIRAPARIB
     Dosage: UNK (100 MG ALTERNATING WITH 200MG)
     Route: 048
  16. ZEJULA [Suspect]
     Active Substance: NIRAPARIB
     Dosage: 200MG ALTERNATING WITH 100MG DAILY
     Dates: start: 20181206
  17. ZEJULA [Suspect]
     Active Substance: NIRAPARIB
     Dosage: 200 MG, QOD (ALTERNATING WITH 100MG EVERY OTHER DAY)
     Route: 048
     Dates: start: 20171128
  18. LORAZEPAM. [Concomitant]
     Active Substance: LORAZEPAM
     Indication: PRODUCT USED FOR UNKNOWN INDICATION
     Dosage: UNK
  19. MELOXICAM. [Concomitant]
     Active Substance: MELOXICAM
     Indication: PRODUCT USED FOR UNKNOWN INDICATION
     Dosage: UNK
  20. ZEJULA [Suspect]
     Active Substance: NIRAPARIB
     Dosage: 200 MG, QD
     Route: 048
  21. ENALAPRIL MALEATE. [Concomitant]
     Active Substance: ENALAPRIL MALEATE
     Indication: PRODUCT USED FOR UNKNOWN INDICATION
     Dosage: UNK
  22. VITAMIN D [Concomitant]
     Active Substance: CHOLECALCIFEROL
     Indication: PRODUCT USED FOR UNKNOWN INDICATION
     Dosage: UNK
  23. CRESTOR [Concomitant]
     Active Substance: ROSUVASTATIN CALCIUM
     Indication: PRODUCT USED FOR UNKNOWN INDICATION
     Dosage: UNK
  24. MOVANTIK [Concomitant]
     Active Substance: NALOXEGOL OXALATE
     Indication: PRODUCT USED FOR UNKNOWN INDICATION
     Dosage: UNK

REACTIONS (51)
  - Pain in extremity [Unknown]
  - Vomiting [Not Recovered/Not Resolved]
  - Anaemia [Unknown]
  - Loss of personal independence in daily activities [Unknown]
  - Sensitivity of teeth [Unknown]
  - Dyspepsia [Unknown]
  - Dry mouth [Unknown]
  - Tooth injury [Unknown]
  - Renal disorder [Unknown]
  - Product use in unapproved indication [Unknown]
  - Musculoskeletal pain [Unknown]
  - Balance disorder [Not Recovered/Not Resolved]
  - Blood glucose increased [Unknown]
  - Arthralgia [Unknown]
  - Haemoglobin decreased [Unknown]
  - Rhinorrhoea [Unknown]
  - Sneezing [Unknown]
  - Food craving [Unknown]
  - Gastrooesophageal reflux disease [Not Recovered/Not Resolved]
  - Pain [Unknown]
  - Stomach mass [Unknown]
  - Headache [Not Recovered/Not Resolved]
  - Depression [Unknown]
  - Nasopharyngitis [Unknown]
  - Insomnia [Unknown]
  - Fatigue [Unknown]
  - Toothache [Unknown]
  - Abnormal faeces [Unknown]
  - Nausea [Not Recovered/Not Resolved]
  - Myalgia [Unknown]
  - Dizziness [Unknown]
  - Dry throat [Recovered/Resolved]
  - Somnolence [Unknown]
  - Inappropriate schedule of product administration [Unknown]
  - Constipation [Unknown]
  - Asthenia [Unknown]
  - Dyspnoea [Unknown]
  - Memory impairment [Unknown]
  - Emotional distress [Unknown]
  - Pruritus [Unknown]
  - Cough [Unknown]
  - Weight decreased [Unknown]
  - Erythema [Unknown]
  - Hernia [Unknown]
  - Haematochezia [Unknown]
  - Contusion [Unknown]
  - Abdominal pain upper [Unknown]
  - Renal function test abnormal [Unknown]
  - Flatulence [Not Recovered/Not Resolved]
  - Faeces soft [Unknown]
  - Glycosylated haemoglobin increased [Unknown]

NARRATIVE: CASE EVENT DATE: 20171024
